FAERS Safety Report 7440381-8 (Version None)
Quarter: 2011Q2

REPORT INFORMATION
  Report Type: 
  Country: None (occurrence: None)
  Receive Date: 20110427
  Receipt Date: 20110425
  Transmission Date: 20111010
  Serious: Yes (Other)
  Sender: FDA-Public Use
  Company Number: US-PFIZER INC-2011089449

PATIENT
  Sex: Female
  Weight: 54.42 kg

DRUGS (3)
  1. OXYCODONE [Concomitant]
     Indication: PAIN
     Dosage: 5 MG, AS NEEDED
     Route: 048
  2. PROZAC [Concomitant]
     Indication: MENTAL DISORDER
     Dosage: 10 MG, 1X/DAY
     Route: 048
  3. GABAPENTIN [Suspect]
     Indication: NEUROPATHY PERIPHERAL
     Dosage: 300 MG, 3X/DAY
     Route: 048
     Dates: start: 20110401, end: 20110425

REACTIONS (5)
  - JOINT SWELLING [None]
  - MALAISE [None]
  - RED BLOOD CELL COUNT DECREASED [None]
  - WHITE BLOOD CELL COUNT DECREASED [None]
  - INFLUENZA LIKE ILLNESS [None]
